FAERS Safety Report 4631628-1 (Version None)
Quarter: 2005Q2

REPORT INFORMATION
  Report Type: 
  Country: None (occurrence: None)
  Receive Date: 20050407
  Receipt Date: 20050323
  Transmission Date: 20051028
  Serious: Yes (Hospitalization)
  Sender: FDA-Public Use
  Company Number: 2004SE03625

PATIENT
  Age: 80 Year
  Sex: Male

DRUGS (12)
  1. SEROQUEL [Suspect]
     Indication: PSYCHOTIC DISORDER
     Dosage: 50 MG DAILY PO
     Route: 048
     Dates: start: 20030801, end: 20040504
  2. HEMINEVRIN [Concomitant]
  3. PROPAVAN [Concomitant]
  4. THERALEN [Concomitant]
  5. ORUDIS [Concomitant]
  6. CISORDINOL [Concomitant]
  7. OXASCAND [Concomitant]
  8. EMCONCOR [Concomitant]
  9. ASPIRIN [Concomitant]
  10. ALLOPURINOL [Concomitant]
  11. TOREM [Concomitant]
  12. ZOPIKLON NM PHARMA [Concomitant]

REACTIONS (6)
  - ALANINE AMINOTRANSFERASE INCREASED [None]
  - ASPARTATE AMINOTRANSFERASE INCREASED [None]
  - BLOOD ALKALINE PHOSPHATASE INCREASED [None]
  - BLOOD BILIRUBIN INCREASED [None]
  - GAMMA-GLUTAMYLTRANSFERASE INCREASED [None]
  - LIVER DISORDER [None]
